FAERS Safety Report 13428147 (Version 24)
Quarter: 2019Q2

REPORT INFORMATION
  Report Type: Report from Study
  Country: US (occurrence: US)
  Receive Date: 20170411
  Receipt Date: 20190626
  Transmission Date: 20190711
  Serious: Yes (Hospitalization, Other)
  Sender: FDA-Public Use
  Company Number: US-ACTELION-A-US2017-150000

PATIENT
  Age: 70 Year
  Sex: Female
  Weight: 79.82 kg

DRUGS (10)
  1. OPSUMIT [Suspect]
     Active Substance: MACITENTAN
     Dosage: 10 MG, QD
     Route: 048
     Dates: start: 20170118
  2. OXYGEN. [Concomitant]
     Active Substance: OXYGEN
     Dosage: 5 L, UNK
  3. OPSUMIT [Suspect]
     Active Substance: MACITENTAN
     Indication: PULMONARY HYPERTENSION
     Dosage: 10 MG, QD
     Route: 048
  4. UPTRAVI [Suspect]
     Active Substance: SELEXIPAG
     Dosage: UNK
     Route: 048
  5. ADEMPAS [Suspect]
     Active Substance: RIOCIGUAT
     Indication: PRODUCT USED FOR UNKNOWN INDICATION
     Dosage: 1.5 MG, TID
     Route: 065
     Dates: start: 20170220
  6. UPTRAVI [Suspect]
     Active Substance: SELEXIPAG
     Dosage: 800 MCG, BID
     Route: 048
  7. ADEMPAS [Suspect]
     Active Substance: RIOCIGUAT
     Dosage: 2 MG, TID
     Route: 065
     Dates: start: 20170318
  8. UPTRAVI [Suspect]
     Active Substance: SELEXIPAG
     Indication: PULMONARY HYPERTENSION
     Dosage: 600 MCG, BID
     Route: 048
  9. OXYGEN. [Concomitant]
     Active Substance: OXYGEN
     Dosage: 2 L, UNK
  10. UPTRAVI [Suspect]
     Active Substance: SELEXIPAG
     Dosage: 200 MCG, BID
     Route: 048

REACTIONS (41)
  - Intestinal haemorrhage [Unknown]
  - Arthralgia [Unknown]
  - Product dose omission [Unknown]
  - Dyspnoea exertional [Unknown]
  - Malaise [Unknown]
  - Abdominal pain upper [Unknown]
  - Insomnia [Unknown]
  - Fatigue [Unknown]
  - Oedema peripheral [Unknown]
  - Blood iron decreased [Unknown]
  - Dyspepsia [Unknown]
  - Contusion [Unknown]
  - Headache [Unknown]
  - Myalgia [Unknown]
  - Platelet count decreased [Unknown]
  - Fall [Unknown]
  - Productive cough [Unknown]
  - Nasal congestion [Unknown]
  - Dizziness [Unknown]
  - Weight decreased [Unknown]
  - Rectal haemorrhage [Unknown]
  - Mineral supplementation [Unknown]
  - Sinusitis [Unknown]
  - Anaemia [Unknown]
  - Nausea [Unknown]
  - Condition aggravated [Unknown]
  - Chills [Unknown]
  - Haemoglobin decreased [Unknown]
  - Diarrhoea [Unknown]
  - Sinus disorder [Unknown]
  - Pyrexia [Unknown]
  - Pneumonia [Unknown]
  - Asthenia [Unknown]
  - Gastrointestinal pain [Unknown]
  - Decreased appetite [Unknown]
  - Gastrointestinal haemorrhage [Recovering/Resolving]
  - Oxygen saturation decreased [Unknown]
  - Diarrhoea haemorrhagic [Unknown]
  - Oedema [Unknown]
  - Gastrointestinal disorder [Unknown]
  - Renal disorder [Unknown]

NARRATIVE: CASE EVENT DATE: 20170223
